FAERS Safety Report 7652988-3 (Version None)
Quarter: 2011Q3

REPORT INFORMATION
  Report Type: 
  Country: None (occurrence: None)
  Receive Date: 20110802
  Receipt Date: 20110802
  Transmission Date: 20111222
  Serious: Yes (Hospitalization, Other)
  Sender: FDA-Public Use
  Company Number: None

PATIENT
  Age: 83 Year
  Sex: Female
  Weight: 58.9676 kg

DRUGS (1)
  1. EXELON [Suspect]
     Dosage: 1 PATCH PER DAY 1 PER DAY ON CHEST
     Dates: start: 20110501, end: 20110507

REACTIONS (1)
  - DIARRHOEA [None]
